FAERS Safety Report 6431155-5 (Version None)
Quarter: 2009Q4

REPORT INFORMATION
  Report Type: 
  Country: None (occurrence: None)
  Receive Date: 20091106
  Receipt Date: 20091104
  Transmission Date: 20100525
  Serious: Yes (Other)
  Sender: FDA-Public Use
  Company Number: GB-BRISTOL-MYERS SQUIBB COMPANY-14843767

PATIENT
  Age: 64 Year
  Sex: Male

DRUGS (2)
  1. PRAVASTATIN SODIUM [Suspect]
     Indication: LIPIDS INCREASED
     Route: 048
     Dates: end: 20090801
  2. CIALIS [Concomitant]
     Indication: ERECTILE DYSFUNCTION
     Route: 048

REACTIONS (9)
  - BLOOD PRESSURE INCREASED [None]
  - DIZZINESS [None]
  - FATIGUE [None]
  - HYPERHIDROSIS [None]
  - INFLUENZA LIKE ILLNESS [None]
  - MALAISE [None]
  - MUSCULOSKELETAL STIFFNESS [None]
  - MYALGIA [None]
  - NAUSEA [None]
